FAERS Safety Report 9601967 (Version 36)
Quarter: 2017Q1

REPORT INFORMATION
  Report Type: Report from Study
  Country: CA (occurrence: CA)
  Receive Date: 20131007
  Receipt Date: 20170302
  Transmission Date: 20170429
  Serious: Yes (Hospitalization, Other)
  Sender: FDA-Public Use
  Company Number: PHHY2013CA109844

PATIENT
  Age: 79 Year
  Sex: Female

DRUGS (6)
  1. SANDOSTATIN LAR DEPOT [Suspect]
     Active Substance: OCTREOTIDE ACETATE
     Dosage: 30 MG, QMO (EVERY 4 WEEKS)
     Route: 030
     Dates: start: 20140123, end: 20160421
  2. ATENOLOL. [Concomitant]
     Active Substance: ATENOLOL
     Indication: PRODUCT USED FOR UNKNOWN INDICATION
     Route: 065
  3. SANDOSTATIN [Suspect]
     Active Substance: OCTREOTIDE ACETATE
     Indication: PANCREATIC NEUROENDOCRINE TUMOUR
     Dosage: 50 UG, TID
     Route: 058
     Dates: start: 20130824
  4. SANDOSTATIN [Suspect]
     Active Substance: OCTREOTIDE ACETATE
     Dosage: 200 UG, TID PRN
     Route: 058
  5. SANDOSTATIN LAR DEPOT [Suspect]
     Active Substance: OCTREOTIDE ACETATE
     Indication: PANCREATIC NEUROENDOCRINE TUMOUR
     Dosage: 20 MG, QMO (EVERY 4 WEEKS)
     Route: 030
     Dates: start: 20131002, end: 20131227
  6. SANDOSTATIN LAR DEPOT [Suspect]
     Active Substance: OCTREOTIDE ACETATE
     Dosage: 30 MG (EVERY 3 WEEKS)
     Route: 030
     Dates: start: 20160519

REACTIONS (27)
  - Subdural haematoma [Recovering/Resolving]
  - Cerebral haemorrhage [Unknown]
  - Body temperature decreased [Unknown]
  - Diarrhoea [Unknown]
  - Abdominal pain upper [Unknown]
  - Incorrect dose administered [Unknown]
  - Haematemesis [Unknown]
  - Fatigue [Unknown]
  - Fall [Unknown]
  - Gait disturbance [Unknown]
  - Confusional state [Not Recovered/Not Resolved]
  - Intestinal obstruction [Unknown]
  - Blood pressure increased [Unknown]
  - Accident [Unknown]
  - Fear of eating [Unknown]
  - Delirium [Unknown]
  - Gastrointestinal haemorrhage [Unknown]
  - Abasia [Unknown]
  - Neoplasm [Unknown]
  - Dehydration [Unknown]
  - Blood pressure diastolic decreased [Unknown]
  - Weight decreased [Unknown]
  - Blood glucose increased [Unknown]
  - Hernia [Unknown]
  - Blood pressure systolic increased [Unknown]
  - Dizziness [Unknown]
  - Malaise [Unknown]

NARRATIVE: CASE EVENT DATE: 20140321
